FAERS Safety Report 9443244 (Version 2)
Quarter: 2013Q3

REPORT INFORMATION
  Report Type: Report from Study
  Country: CA (occurrence: CA)
  Receive Date: 20130806
  Receipt Date: 20130814
  Transmission Date: 20140515
  Serious: No
  Sender: FDA-Public Use
  Company Number: CA-ROCHE-1159700

PATIENT
  Age: 69 Year
  Sex: Female
  Weight: 56 kg

DRUGS (4)
  1. ACTEMRA [Suspect]
     Indication: RHEUMATOID ARTHRITIS
     Route: 042
     Dates: start: 20121026
  2. ACTEMRA [Suspect]
     Route: 042
     Dates: start: 20121221
  3. MEDROL [Concomitant]
  4. ATENOLOL [Concomitant]

REACTIONS (3)
  - Hypertension [Unknown]
  - Cough [Not Recovered/Not Resolved]
  - Hypotension [Unknown]
